FAERS Safety Report 5901683-7 (Version None)
Quarter: 2008Q3

REPORT INFORMATION
  Report Type: 
  Country: None (occurrence: None)
  Receive Date: 20080929
  Receipt Date: 20080923
  Transmission Date: 20090109
  Serious: Yes (Other)
  Sender: FDA-Public Use
  Company Number: A0748707A

PATIENT
  Age: 46 Year
  Sex: Female

DRUGS (5)
  1. VALTREX [Suspect]
     Indication: EPSTEIN-BARR VIRUS INFECTION
     Dosage: 1G TWICE PER DAY
     Route: 048
     Dates: start: 20080729, end: 20080818
  2. VITAMIN B [Concomitant]
  3. WHEAT GRASS [Concomitant]
     Indication: SUPPLEMENTATION THERAPY
  4. DOSTINEX [Concomitant]
  5. ZITHROMAX [Concomitant]

REACTIONS (7)
  - ARTHRALGIA [None]
  - DYSPNOEA [None]
  - PITYRIASIS ROSEA [None]
  - PNEUMONIA [None]
  - RASH [None]
  - URTICARIA [None]
  - WHEEZING [None]
